FAERS Safety Report 5939887-X (Version None)
Quarter: 2008Q4

REPORT INFORMATION
  Report Type: 
  Country: None (occurrence: None)
  Receive Date: 20081104
  Receipt Date: 20081029
  Transmission Date: 20090506
  Serious: Yes (Hospitalization)
  Sender: FDA-Public Use
  Company Number: CH-BRISTOL-MYERS SQUIBB COMPANY-14380604

PATIENT
  Age: 70 Year
  Sex: Male

DRUGS (6)
  1. CETUXIMAB [Suspect]
     Indication: COLORECTAL CANCER
     Dosage: THERAPY STARTED ON 30-JUN-2008
     Route: 042
     Dates: start: 20081007, end: 20081007
  2. OXALIPLATIN [Suspect]
     Indication: COLORECTAL CANCER
     Dosage: THERAPY STARTED ON 30-JUN-2008
     Route: 042
     Dates: start: 20080930, end: 20080930
  3. IRINOTECAN HYDROCHLORIDE [Suspect]
     Indication: COLORECTAL CANCER
     Dosage: THERAPY STARTED ON 08-JUL-2008
     Route: 042
     Dates: start: 20081007, end: 20081007
  4. FLUOROURACIL [Suspect]
     Indication: COLORECTAL CANCER
     Dosage: THERAPY STARTED ON 30-JUN-2008
     Route: 042
     Dates: start: 20081007, end: 20081007
  5. LEUCOVORIN CALCIUM [Suspect]
     Indication: COLORECTAL CANCER
     Dosage: NO DATE OF ADMINISTRATION PRIOR TO THE EVENTS REPORTED
     Route: 042
     Dates: start: 20080630
  6. BEVACIZUMAB [Suspect]
     Indication: COLORECTAL CANCER
     Dosage: THERAPY STARTED ON 30-JUN-2008
     Route: 040
     Dates: start: 20080916, end: 20080916

REACTIONS (7)
  - ANOREXIA [None]
  - BLOOD CREATININE INCREASED [None]
  - DEHYDRATION [None]
  - DIARRHOEA [None]
  - HYPOKALAEMIA [None]
  - RENAL FAILURE ACUTE [None]
  - VOMITING [None]
